FAERS Safety Report 12397547 (Version 1)
Quarter: 2016Q2

REPORT INFORMATION
  Report Type: Spontaneous
  Country: US (occurrence: US)
  Receive Date: 20160524
  Receipt Date: 20160524
  Transmission Date: 20160815
  Serious: No
  Sender: FDA-Public Use
  Company Number: US-GLAXOSMITHKLINE-US2016072202

PATIENT
  Age: 54 Year
  Sex: Female

DRUGS (1)
  1. ABREVA [Suspect]
     Active Substance: DOCOSANOL
     Indication: ORAL HERPES
     Dosage: UNK
     Dates: start: 20160511, end: 20160512

REACTIONS (2)
  - Hypersensitivity [Recovered/Resolved]
  - Angular cheilitis [Recovered/Resolved]

NARRATIVE: CASE EVENT DATE: 20160511
